FAERS Safety Report 8375904-8 (Version None)
Quarter: 2012Q1

REPORT INFORMATION
  Report Type: 
  Country: None (occurrence: None)
  Receive Date: 20120323
  Receipt Date: 20110729
  Transmission Date: 20120608
  Serious: Yes (Hospitalization, Other)
  Sender: FDA-Public Use
  Company Number: 163-21880-11080057

PATIENT
  Age: 52 Year
  Sex: Female

DRUGS (11)
  1. ATIVAN [Concomitant]
  2. XANAX [Concomitant]
  3. REVLIMID [Suspect]
     Indication: MULTIPLE MYELOMA
     Dosage: 25 MG, DAILY X 3 WEEKS/7 DAYS OFF, PO
     Route: 048
     Dates: start: 20110301
  4. NITROSTAT [Concomitant]
  5. DILAUDID [Concomitant]
  6. HYDROCHLOROTHIAZIDE [Concomitant]
  7. DECADRON [Concomitant]
  8. ZOMETA [Concomitant]
  9. KYTRIL [Concomitant]
  10. VICOPROFEN [Concomitant]
  11. VELCADE [Concomitant]

REACTIONS (2)
  - NAUSEA [None]
  - BLOOD POTASSIUM ABNORMAL [None]
